FAERS Safety Report 4282474-2 (Version None)
Quarter: 2004Q1

REPORT INFORMATION
  Report Type: 
  Country: None (occurrence: None)
  Receive Date: 20040116
  Receipt Date: 20021231
  Transmission Date: 20041129
  Serious: No
  Sender: FDA-Public Use
  Company Number: 03P-163-0207561-00

PATIENT
  Sex: Female

DRUGS (1)
  1. MERIDIA [Suspect]
     Indication: WEIGHT CONTROL
     Dosage: 15 MG, 1 IN 1 D, PER ORAL
     Route: 048
     Dates: start: 20010117, end: 20010501

REACTIONS (4)
  - BLOOD PRESSURE FLUCTUATION [None]
  - HEADACHE [None]
  - NAUSEA [None]
  - VOMITING [None]
